FAERS Safety Report 19420948 (Version 2)
Quarter: 2021Q2

REPORT INFORMATION
  Report Type: Spontaneous
  Country: US (occurrence: US)
  Receive Date: 20210616
  Receipt Date: 20210624
  Transmission Date: 20210717
  Serious: Yes (Hospitalization, Other)
  Sender: FDA-Public Use
  Company Number: US-35507-2021-09198

PATIENT
  Age: 23 Year
  Sex: Female

DRUGS (5)
  1. ARIPIPRAZOLE. [Interacting]
     Active Substance: ARIPIPRAZOLE
     Indication: BIPOLAR II DISORDER
     Dosage: 10 MILLIGRAM, QD (SELF?DISCONTINUED ABOUT 8 MONTHS PRIOR TO PRESENTATION AND LATER RESTARTED)
     Route: 065
  2. SERTRALINE [Interacting]
     Active Substance: SERTRALINE HYDROCHLORIDE
     Dosage: 100 MILLIGRAM, QD (ACTION TAKEN: DOSE DECREASED)
     Route: 065
  3. SERTRALINE [Interacting]
     Active Substance: SERTRALINE HYDROCHLORIDE
     Dosage: 75 MILLIGRAM, QD (ACTION TAKEN: UNKNOWN)
     Route: 065
  4. ARIPIPRAZOLE. [Interacting]
     Active Substance: ARIPIPRAZOLE
     Dosage: 10 MILLIGRAM, QD
     Route: 065
  5. SERTRALINE [Suspect]
     Active Substance: SERTRALINE HYDROCHLORIDE
     Indication: BIPOLAR II DISORDER
     Dosage: 100 MILLIGRAM, QD (SELF?DISCONTINUED ABOUT 8 MONTHS PRIOR TO PRESENTATION AND LATER RESTARTED)
     Route: 065

REACTIONS (10)
  - Sinus bradycardia [Recovering/Resolving]
  - Loss of consciousness [Recovered/Resolved]
  - Vomiting [Recovered/Resolved]
  - Hypersomnia [Recovering/Resolving]
  - Head injury [Recovering/Resolving]
  - Syncope [Recovered/Resolved]
  - Dizziness [Recovered/Resolved]
  - Drug interaction [Unknown]
  - Hypotension [Recovered/Resolved]
  - Fall [Recovering/Resolving]
